FAERS Safety Report 7680313-0 (Version None)
Quarter: 2011Q3

REPORT INFORMATION
  Report Type: 
  Country: None (occurrence: None)
  Receive Date: 20110812
  Receipt Date: 20110805
  Transmission Date: 20111222
  Serious: Yes (Death, Life-Threatening, Hospitalization, Other)
  Sender: FDA-Public Use
  Company Number: US-GLAXOSMITHKLINE-A0931680A

PATIENT
  Age: 51 Year
  Sex: Female

DRUGS (8)
  1. PROMACTA [Suspect]
     Indication: IDIOPATHIC THROMBOCYTOPENIC PURPURA
     Dates: start: 20100104, end: 20110119
  2. CELLCEPT [Concomitant]
  3. PROZEF [Concomitant]
  4. INSULIN [Concomitant]
  5. BACTRIM [Concomitant]
  6. UNKNOWN MEDICATION [Concomitant]
  7. CORTICOSTEROIDS [Concomitant]
  8. DANAZOL [Concomitant]

REACTIONS (6)
  - THROMBOCYTOPENIA [None]
  - CEREBRAL HAEMORRHAGE [None]
  - LIP HAEMORRHAGE [None]
  - PLATELET COUNT DECREASED [None]
  - MOUTH HAEMORRHAGE [None]
  - HAEMORRHAGIC STROKE [None]
